FAERS Safety Report 8959136 (Version 1)
Quarter: 2012Q4

REPORT INFORMATION
  Report Type: 
  Country: US (occurrence: US)
  Receive Date: 20121211
  Receipt Date: 20121211
  Transmission Date: 20130627
  Serious: No
  Sender: FDA-Public Use
  Company Number: US-VERTEX PHARMACEUTICAL INC.-2012-020297

PATIENT

DRUGS (8)
  1. VX-950 (TELAPREVIR) [Suspect]
     Indication: HEPATITIS C
     Dosage: 750 mg, tid
     Route: 048
  2. PEGASYS [Concomitant]
     Indication: HEPATITIS C
     Dosage: 180 ?g, weekly
     Route: 058
  3. RIBAPAK [Concomitant]
     Indication: HEPATITIS C
     Dosage: 1200, qd
     Route: 048
  4. DILAUDID SUP [Concomitant]
     Dosage: 3 mg, UNK
  5. VALIUM                             /00017001/ [Concomitant]
     Dosage: 5 mg, UNK
     Route: 048
  6. LEVOTHYROXIN [Concomitant]
     Dosage: 25 ?g, UNK
     Route: 048
  7. VITAMIN C                          /00008001/ [Concomitant]
     Dosage: 500 mg, UNK
     Route: 048
  8. VITAMIN D GUMMIE CHW [Concomitant]
     Dosage: 4000 ut, UNK
     Route: 048

REACTIONS (1)
  - Rash [Unknown]
